FAERS Safety Report 9587439 (Version 1)
Quarter: 2013Q4

REPORT INFORMATION
  Report Type: Spontaneous
  Country: FR (occurrence: FR)
  Receive Date: 20131003
  Receipt Date: 20131003
  Transmission Date: 20140711
  Serious: Yes (Hospitalization)
  Sender: FDA-Public Use
  Company Number: PHHY2013FR108259

PATIENT
  Age: 52 Year
  Sex: Female

DRUGS (13)
  1. TEGRETOL LP [Suspect]
     Indication: HERPES ZOSTER
     Dosage: 200 MG, BID
     Route: 048
     Dates: start: 20130816, end: 20130819
  2. TEGRETOL LP [Suspect]
     Dosage: 400 MG, BID
     Route: 048
     Dates: start: 20130819, end: 20130820
  3. LAROXYL [Suspect]
     Indication: HERPES ZOSTER
     Dosage: 5 DRP, QD
     Route: 048
     Dates: start: 20130814, end: 20130816
  4. LAROXYL [Suspect]
     Dosage: 5 DRP, QD
     Route: 048
     Dates: start: 20130819, end: 20130820
  5. OXALIPLATIN [Concomitant]
     Indication: PANCREATIC CARCINOMA
     Dosage: UNK UKN, EVERY 15 DAYS
  6. IRINOTECAN [Concomitant]
     Indication: PANCREATIC CARCINOMA
     Dosage: UNK UKN, EVERY 15 DAYS
  7. LEUCOVORIN [Concomitant]
     Indication: PANCREATIC CARCINOMA
     Dosage: UNK UKN, EVERY 15 DAYS
  8. FLUOROURACIL [Concomitant]
     Indication: PANCREATIC CARCINOMA
     Dosage: UNK UKN, EVERY 15 DAYS
  9. DUROGESIC [Concomitant]
     Indication: CANCER PAIN
     Dosage: 75 UG, EVERY 3 DAYS
     Route: 062
     Dates: end: 20130819
  10. OXYNORM [Concomitant]
     Indication: CANCER PAIN
     Dosage: UNK UKN, UNK
  11. LEUKOCYTE POOR RED CELLS [Concomitant]
     Indication: NEUTROPENIA
     Dosage: UNK UKN, UNK
     Dates: start: 201305
  12. KETAMINE [Concomitant]
     Indication: HERPES ZOSTER
     Dosage: 50 MG, QD
     Dates: start: 20130814
  13. OXYCONTIN LP [Concomitant]
     Indication: CANCER PAIN
     Dosage: 80 MG, BID
     Dates: start: 20130819

REACTIONS (2)
  - Neutropenia [Recovering/Resolving]
  - Leukopenia [Recovering/Resolving]
